FAERS Safety Report 9469127 (Version 1)
Quarter: 2013Q3

REPORT INFORMATION
  Report Type: Spontaneous
  Country: US (occurrence: US)
  Receive Date: 20130821
  Receipt Date: 20130821
  Transmission Date: 20140515
  Serious: No
  Sender: FDA-Public Use
  Company Number: US-NOVEN-13US007091

PATIENT
  Age: 58 Year
  Sex: Female
  Weight: 45.35 kg

DRUGS (1)
  1. MINIVELLE [Suspect]
     Indication: PRODUCT USED FOR UNKNOWN INDICATION
     Dosage: 0.1 MG, 2/WK
     Route: 062
     Dates: start: 20130526, end: 20130610

REACTIONS (1)
  - Hot flush [Unknown]
